FAERS Safety Report 6604468-1 (Version None)
Quarter: 2010Q1

REPORT INFORMATION
  Report Type: 
  Country: None (occurrence: None)
  Receive Date: 20100226
  Receipt Date: 20091021
  Transmission Date: 20100710
  Serious: No
  Sender: FDA-Public Use
  Company Number: A0812778A

PATIENT
  Sex: Male

DRUGS (2)
  1. LAMOTRIGINE [Suspect]
     Indication: BIPOLAR DISORDER
     Route: 048
  2. WELLBUTRIN [Concomitant]

REACTIONS (4)
  - AMNESIA [None]
  - DRUG INEFFECTIVE [None]
  - HEADACHE [None]
  - INSOMNIA [None]
